FAERS Safety Report 15497107 (Version 1)
Quarter: 2018Q4

REPORT INFORMATION
  Report Type: Spontaneous
  Country: CH (occurrence: CH)
  Receive Date: 20181015
  Receipt Date: 20181015
  Transmission Date: 20190205
  Serious: Yes (Other)
  Sender: FDA-Public Use
  Company Number: CH-ROCHE-2195436

PATIENT

DRUGS (4)
  1. RANIBIZUMAB. [Suspect]
     Active Substance: RANIBIZUMAB
     Indication: DETACHMENT OF RETINAL PIGMENT EPITHELIUM
  2. RETAANE [Suspect]
     Active Substance: ANECORTAVE
     Indication: AGE-RELATED MACULAR DEGENERATION
     Dosage: 2 INJECTIONS
     Route: 065
  3. RETAANE [Suspect]
     Active Substance: ANECORTAVE
     Indication: DETACHMENT OF RETINAL PIGMENT EPITHELIUM
  4. RANIBIZUMAB. [Suspect]
     Active Substance: RANIBIZUMAB
     Indication: AGE-RELATED MACULAR DEGENERATION
     Dosage: (37 INJECTIONS)
     Route: 031
     Dates: end: 2013

REACTIONS (2)
  - Drug ineffective [Unknown]
  - Subretinal fluid [Unknown]

NARRATIVE: CASE EVENT DATE: 2007
